FAERS Safety Report 8722835 (Version 2)
Quarter: 2012Q4

REPORT INFORMATION
  Report Type: 
  Country: US (occurrence: US)
  Receive Date: 20120814
  Receipt Date: 20121221
  Transmission Date: 20130627
  Serious: No
  Sender: FDA-Public Use
  Company Number: US-ASTRAZENECA-2012SE24080

PATIENT
  Age: 57 Year
  Sex: Male

DRUGS (2)
  1. NEXIUM [Suspect]
     Indication: GASTROOESOPHAGEAL REFLUX DISEASE
     Route: 048
     Dates: start: 2007
  2. NEXIUM [Suspect]
     Indication: GASTROOESOPHAGEAL REFLUX DISEASE
     Dosage: GENERIC
     Route: 048

REACTIONS (7)
  - Gastrooesophageal reflux disease [Unknown]
  - Breathing-related sleep disorder [Unknown]
  - Dyspnoea [Unknown]
  - Asthma [Unknown]
  - Feeling abnormal [Unknown]
  - Vomiting [Unknown]
  - Drug dose omission [Unknown]
